FAERS Safety Report 8421104-2 (Version None)
Quarter: 2012Q2

REPORT INFORMATION
  Report Type: 
  Country: None (occurrence: None)
  Receive Date: 20120604
  Receipt Date: 20120604
  Transmission Date: 20120825
  Serious: Yes (Other)
  Sender: FDA-Public Use
  Company Number: None

PATIENT
  Sex: Female
  Weight: 77.5651 kg

DRUGS (1)
  1. HYDROCHLOROTHIAZIDE [Suspect]
     Indication: HYPERTENSION
     Dosage: 12.5MG DAILY PO
     Route: 048
     Dates: start: 20120420, end: 20120505

REACTIONS (4)
  - CONFUSIONAL STATE [None]
  - HYDROCEPHALUS [None]
  - HEADACHE [None]
  - ASTHENIA [None]
